FAERS Safety Report 8349734-7 (Version None)
Quarter: 2012Q2

REPORT INFORMATION
  Report Type: 
  Country: None (occurrence: None)
  Receive Date: 20120510
  Receipt Date: 20120507
  Transmission Date: 20120825
  Serious: Yes (Other)
  Sender: FDA-Public Use
  Company Number: JP-BAYER-2011-053281

PATIENT
  Age: 10 Month
  Sex: Male

DRUGS (3)
  1. POLYGAM S/D [Concomitant]
     Indication: KAWASAKI'S DISEASE
  2. ASPIRIN [Suspect]
     Indication: KAWASAKI'S DISEASE
  3. CORTICOSTEROIDS [Suspect]
     Indication: KAWASAKI'S DISEASE

REACTIONS (1)
  - KAPOSI'S VARICELLIFORM ERUPTION [None]
